FAERS Safety Report 8378494-9 (Version None)
Quarter: 2012Q2

REPORT INFORMATION
  Report Type: 
  Country: None (occurrence: None)
  Receive Date: 20120522
  Receipt Date: 20120517
  Transmission Date: 20120825
  Serious: Yes (Other)
  Sender: FDA-Public Use
  Company Number: JP-BAYER-2012-037687

PATIENT
  Age: 74 Year
  Sex: Male
  Weight: 59 kg

DRUGS (3)
  1. RABEPRAZOLE SODIUM [Concomitant]
     Indication: ULCER
     Dosage: DAILY DOSE 10 MG
     Route: 048
     Dates: start: 20110628
  2. NEXAVAR [Suspect]
     Indication: HEPATIC NEOPLASM MALIGNANT
     Dosage: DAILY DOSE 400 MG
     Route: 048
     Dates: start: 20120321, end: 20120329
  3. NEXAVAR [Suspect]
     Dosage: 400 MG, UNK
     Dates: start: 20120402

REACTIONS (1)
  - LIVER DISORDER [None]
